FAERS Safety Report 6262288-4 (Version None)
Quarter: 2009Q3

REPORT INFORMATION
  Report Type: 
  Country: None (occurrence: None)
  Receive Date: 20090709
  Receipt Date: 20090701
  Transmission Date: 20100115
  Serious: Yes (Life-Threatening, Other)
  Sender: FDA-Public Use
  Company Number: GB-ABBOTT-09P-167-0498006-00

PATIENT
  Sex: Male

DRUGS (7)
  1. HUMIRA [Suspect]
     Indication: PSORIATIC ARTHROPATHY
     Route: 058
     Dates: start: 20070213, end: 20080930
  2. LAMISIL [Suspect]
     Indication: FUNGAL INFECTION
     Route: 048
  3. ACETAMINOPHEN W/ CODEINE [Suspect]
     Indication: ANALGESIA
     Route: 048
  4. METFORMIN HCL [Suspect]
     Indication: DIABETES MELLITUS
     Route: 048
  5. SIMVASTATIN [Suspect]
     Indication: BLOOD CHOLESTEROL INCREASED
     Route: 048
  6. SILDENAFIL [Suspect]
     Indication: ERECTILE DYSFUNCTION
  7. ASPIRIN [Concomitant]
     Indication: DRUG USE FOR UNKNOWN INDICATION

REACTIONS (6)
  - EPSTEIN-BARR VIRUS ANTIBODY POSITIVE [None]
  - HODGKIN'S DISEASE [None]
  - ONYCHOMYCOSIS [None]
  - PYREXIA [None]
  - TOOTH ABSCESS [None]
  - WEIGHT INCREASED [None]
